FAERS Safety Report 17089681 (Version 1)
Quarter: 2019Q4

REPORT INFORMATION
  Report Type: Spontaneous
  Country: US (occurrence: US)
  Receive Date: 20191031
  Receipt Date: 20191031
  Transmission Date: 20200122
  Serious: Yes (Hospitalization)
  Sender: FDA-Public Use
  Company Number: None

PATIENT
  Age: 70 Year
  Sex: Female

DRUGS (3)
  1. ONDANSETRON [Concomitant]
     Active Substance: ONDANSETRON
  2. CITALOPRAM [Concomitant]
     Active Substance: CITALOPRAM HYDROBROMIDE
  3. MYCOPHENOLATE 250MG CAP [Suspect]
     Active Substance: MYCOPHENOLATE MOFETIL
     Route: 048

REACTIONS (3)
  - Pain [None]
  - Musculoskeletal stiffness [None]
  - Animal bite [None]

NARRATIVE: CASE EVENT DATE: 20190915
